FAERS Safety Report 20943650 (Version 1)
Quarter: 2022Q2

REPORT INFORMATION
  Report Type: Spontaneous
  Country: US (occurrence: US)
  Receive Date: 20220610
  Receipt Date: 20220610
  Transmission Date: 20220720
  Serious: No
  Sender: FDA-Public Use
  Company Number: US-Global Blood Therapeutics Inc-US-GBT-22-01264

PATIENT
  Age: 37 Year
  Sex: Male

DRUGS (1)
  1. OXBRYTA [Suspect]
     Active Substance: VOXELOTOR
     Indication: Sickle cell disease
     Route: 048
     Dates: start: 20220302

REACTIONS (7)
  - Vomiting [Not Recovered/Not Resolved]
  - Swelling face [Not Recovered/Not Resolved]
  - Periorbital swelling [Recovering/Resolving]
  - Periorbital oedema [Recovering/Resolving]
  - Sickle cell anaemia with crisis [Unknown]
  - Nausea [Not Recovered/Not Resolved]
  - Product dose omission issue [Unknown]

NARRATIVE: CASE EVENT DATE: 20220301
